FAERS Safety Report 8197018-2 (Version None)
Quarter: 2012Q1

REPORT INFORMATION
  Report Type: 
  Country: None (occurrence: None)
  Receive Date: 20120309
  Receipt Date: 20120228
  Transmission Date: 20120608
  Serious: Yes (Other)
  Sender: FDA-Public Use
  Company Number: IE-ELI_LILLY_AND_COMPANY-IE201203000680

PATIENT
  Sex: Female

DRUGS (16)
  1. PERSANTIN [Concomitant]
  2. GALFER [Concomitant]
  3. IKOREL [Concomitant]
  4. ACETAMINOPHEN [Concomitant]
  5. LIPITOR [Concomitant]
  6. MOTILIUM [Concomitant]
  7. LASIX [Concomitant]
  8. CALCIUM CARBONATE [Concomitant]
  9. BISOPROLOL FUMARATE [Concomitant]
  10. OXYCONTIN [Concomitant]
  11. PANTUP [Concomitant]
  12. ISOMONIT [Concomitant]
  13. CAPRIN [Concomitant]
  14. FORTEO [Suspect]
     Indication: OSTEOPOROSIS
     Dosage: 20 UG, UNK
     Dates: start: 20111012
  15. SPIRIVA [Concomitant]
  16. NOCTAMID [Concomitant]

REACTIONS (3)
  - DIARRHOEA [None]
  - CELLULITIS [None]
  - SKIN MASS [None]
